FAERS Safety Report 10143711 (Version 1)
Quarter: 2014Q2

REPORT INFORMATION
  Report Type: Spontaneous
  Country: US (occurrence: US)
  Receive Date: 20140430
  Receipt Date: 20140430
  Transmission Date: 20141212
  Serious: No
  Sender: FDA-Public Use
  Company Number: US-PFIZER INC-2014118404

PATIENT
  Sex: Male

DRUGS (3)
  1. XANAX [Suspect]
     Dosage: 5 MG, THREE TIMES A DAY
  2. XANAX [Suspect]
     Dosage: 10 MG, THREE TIMES A DAY
  3. ALLOPURINOL [Concomitant]
     Indication: GOUT
     Dosage: UNK

REACTIONS (1)
  - Insomnia [Unknown]
